FAERS Safety Report 16477416 (Version 1)
Quarter: 2019Q2

REPORT INFORMATION
  Report Type: Report from Study
  Country: US (occurrence: US)
  Receive Date: 20190626
  Receipt Date: 20190626
  Transmission Date: 20190711
  Serious: Yes (Other)
  Sender: FDA-Public Use
  Company Number: PHHY2019US067553

PATIENT
  Age: 51 Year
  Sex: Female

DRUGS (2)
  1. GILENYA [Suspect]
     Active Substance: FINGOLIMOD HYDROCHLORIDE
     Indication: MULTIPLE SCLEROSIS
     Dosage: UNK UNK, QD
     Route: 065
  2. RITALIN [Concomitant]
     Active Substance: METHYLPHENIDATE HYDROCHLORIDE
     Indication: FATIGUE
     Dosage: UNK
     Route: 065
     Dates: start: 20190514

REACTIONS (12)
  - Macular oedema [Unknown]
  - Eye naevus [Unknown]
  - Blood alkaline phosphatase increased [Unknown]
  - Hypoaesthesia [Unknown]
  - Dysphonia [Unknown]
  - Hyperventilation [Unknown]
  - Pain in extremity [Unknown]
  - Diarrhoea [Unknown]
  - Presumed ocular histoplasmosis syndrome [Unknown]
  - Lymphocyte count decreased [Unknown]
  - White blood cell count decreased [Unknown]
  - Cataract [Unknown]

NARRATIVE: CASE EVENT DATE: 20180110
